FAERS Safety Report 7813500-9 (Version None)
Quarter: 2011Q4

REPORT INFORMATION
  Report Type: 
  Country: None (occurrence: None)
  Receive Date: 20111014
  Receipt Date: 20111005
  Transmission Date: 20120403
  Serious: No
  Sender: FDA-Public Use
  Company Number: US-BIOGENIDEC-2011BI038205

PATIENT
  Sex: Female

DRUGS (1)
  1. TYSABRI [Suspect]
     Indication: MULTIPLE SCLEROSIS
     Route: 042
     Dates: start: 20110329

REACTIONS (5)
  - MAJOR DEPRESSION [None]
  - FATIGUE [None]
  - MUSCLE SPASMS [None]
  - DRY SKIN [None]
  - HEPATIC ENZYME INCREASED [None]
